FAERS Safety Report 6881403-2 (Version None)
Quarter: 2010Q3

REPORT INFORMATION
  Report Type: 
  Country: None (occurrence: None)
  Receive Date: 20100728
  Receipt Date: 20091013
  Transmission Date: 20110219
  Serious: No
  Sender: FDA-Public Use
  Company Number: -MYLANLABS-2009S1018069

PATIENT
  Sex: Female

DRUGS (7)
  1. MILNACIPRAN HYDROCHLORIDE [Suspect]
     Indication: FIBROMYALGIA
     Route: 048
     Dates: start: 20091003, end: 20091003
  2. MILNACIPRAN HYDROCHLORIDE [Suspect]
     Route: 048
     Dates: start: 20091004
  3. TRAMADOL HCL [Suspect]
     Indication: FIBROMYALGIA
     Dates: start: 20060101, end: 20091002
  4. EFFEXOR [Suspect]
     Indication: FIBROMYALGIA
     Dates: start: 20060101, end: 20091002
  5. CARTIA /00489702/ [Concomitant]
     Indication: BLOOD PRESSURE INCREASED
  6. VICODIN [Concomitant]
     Indication: PAIN
     Dates: start: 20091003, end: 20091004
  7. VICODIN [Concomitant]
     Dates: start: 20091004

REACTIONS (5)
  - DIZZINESS [None]
  - FEELING COLD [None]
  - HEADACHE [None]
  - HYPERHIDROSIS [None]
  - NAUSEA [None]
